FAERS Safety Report 26198360 (Version 2)
Quarter: 2025Q4

REPORT INFORMATION
  Report Type: Report from Study
  Country: US (occurrence: US)
  Receive Date: 20251224
  Receipt Date: 20251229
  Transmission Date: 20260117
  Serious: Yes (Death)
  Sender: MERCK SHARP & DOHME LLC
  Company Number: US-009507513-2364080

PATIENT
  Age: 61 Year
  Sex: Female

DRUGS (4)
  1. EMEND (FOSAPREPITANT DIMEGLUMINE) [Suspect]
     Active Substance: FOSAPREPITANT DIMEGLUMINE
     Indication: Nausea
     Dosage: TIME INTERVAL: TOTAL: 150 MG IV
     Route: 042
     Dates: start: 20251209
  2. EMEND (FOSAPREPITANT DIMEGLUMINE) [Suspect]
     Active Substance: FOSAPREPITANT DIMEGLUMINE
     Indication: Nausea
     Dosage: INJECT 150MG EVERY 21 DAYS
     Route: 042
     Dates: start: 20251020
  3. TECENTRIQ [Concomitant]
     Active Substance: ATEZOLIZUMAB
  4. UDENYCA [Concomitant]
     Active Substance: PEGFILGRASTIM-CBQV

REACTIONS (1)
  - Death [Fatal]

NARRATIVE: CASE EVENT DATE: 20251217
